FAERS Safety Report 5865779-0 (Version None)
Quarter: 2008Q3

REPORT INFORMATION
  Report Type: 
  Country: None (occurrence: None)
  Receive Date: 20080829
  Receipt Date: 20080822
  Transmission Date: 20090109
  Serious: Yes (Hospitalization)
  Sender: FDA-Public Use
  Company Number: PHRM2007FR00910

PATIENT
  Age: 74 Year
  Sex: Male

DRUGS (5)
  1. VISKEN [Suspect]
     Dosage: UNK, UNK
     Route: 048
     Dates: end: 20070320
  2. ZYLORIC [Suspect]
     Indication: BLOOD URIC ACID INCREASED
     Dosage: 1 DF, QD
     Route: 048
     Dates: end: 20060101
  3. ZYLORIC [Suspect]
     Dosage: UNK, NO TREATMENT
     Route: 048
     Dates: start: 20060101, end: 20061020
  4. ZYLORIC [Suspect]
     Route: 048
     Dates: start: 20061021, end: 20070320
  5. ZANIDIP [Concomitant]
     Dosage: UNK, UNK
     Route: 048
     Dates: end: 20050101

REACTIONS (6)
  - BRONCHIECTASIS [None]
  - INTERSTITIAL LUNG DISEASE [None]
  - LYMPHADENOPATHY [None]
  - PERIPHERAL T-CELL LYMPHOMA UNSPECIFIED [None]
  - PSEUDOLYMPHOMA [None]
  - SKIN LESION [None]
